FAERS Safety Report 15657754 (Version 3)
Quarter: 2019Q1

REPORT INFORMATION
  Report Type: Spontaneous
  Country: US (occurrence: US)
  Receive Date: 20181126
  Receipt Date: 20190315
  Transmission Date: 20190417
  Serious: No
  Sender: FDA-Public Use
  Company Number: US-ASTRAZENECA-2018SF51199

PATIENT
  Age: 23675 Day
  Sex: Female
  Weight: 76.7 kg

DRUGS (14)
  1. METOPROLOL TARTRATE. [Suspect]
     Active Substance: METOPROLOL TARTRATE
     Indication: HYPERTENSION
     Route: 048
  2. FOLIC ACID. [Concomitant]
     Active Substance: FOLIC ACID
     Indication: ILL-DEFINED DISORDER
     Route: 048
  3. BYDUREON BCISE [Suspect]
     Active Substance: EXENATIDE
     Indication: TYPE 2 DIABETES MELLITUS
     Dosage: 2MG/0.85 ML
     Route: 058
     Dates: start: 20181029
  4. ROSUVASTATIN CALCIUM. [Suspect]
     Active Substance: ROSUVASTATIN CALCIUM
     Indication: BLOOD CHOLESTEROL ABNORMAL
     Route: 048
     Dates: start: 201601
  5. GLIMEPIRIDE. [Concomitant]
     Active Substance: GLIMEPIRIDE
     Indication: TYPE 2 DIABETES MELLITUS
     Route: 048
  6. VITAMIN C [Concomitant]
     Active Substance: ASCORBIC ACID
     Indication: ILL-DEFINED DISORDER
     Route: 048
  7. TRIAMTERENE /HCTZ [Concomitant]
     Indication: HYPERTENSION
     Dosage: 70/50 MG HALF TABLET DAILY
     Route: 048
  8. NIACIN. [Concomitant]
     Active Substance: NIACIN
     Indication: BLOOD TRIGLYCERIDES ABNORMAL
     Route: 048
  9. JARDIANCE [Concomitant]
     Active Substance: EMPAGLIFLOZIN
     Indication: DIABETES MELLITUS
     Route: 048
  10. BYDUREON BCISE [Suspect]
     Active Substance: EXENATIDE
     Indication: TYPE 2 DIABETES MELLITUS
     Route: 058
     Dates: start: 20181105
  11. METFORMIN [Concomitant]
     Active Substance: METFORMIN HYDROCHLORIDE
     Indication: DIABETES MELLITUS
     Route: 048
  12. OMEGA 3 [Concomitant]
     Active Substance: OMEGA-3 FATTY ACIDS
     Indication: ILL-DEFINED DISORDER
     Route: 048
  13. VITAMIN B-12 SHOT [Concomitant]
     Indication: SUPPLEMENTATION THERAPY
  14. BIOTIN [Concomitant]
     Active Substance: BIOTIN
     Indication: ILL-DEFINED DISORDER
     Route: 048
     Dates: start: 201809

REACTIONS (9)
  - Injection site pain [Not Recovered/Not Resolved]
  - Injection site mass [Recovered/Resolved]
  - Vitamin B12 deficiency [Unknown]
  - Injection site erythema [Not Recovered/Not Resolved]
  - Cystitis [Unknown]
  - Dyspepsia [Unknown]
  - Decreased appetite [Unknown]
  - Malaise [Unknown]
  - Fatigue [Unknown]

NARRATIVE: CASE EVENT DATE: 20181105
